FAERS Safety Report 24080445 (Version 1)
Quarter: 2024Q3

REPORT INFORMATION
  Report Type: Spontaneous
  Country: US (occurrence: US)
  Receive Date: 20240711
  Receipt Date: 20240711
  Transmission Date: 20241016
  Serious: No
  Sender: APELLIS PHARMACEUTICALS
  Company Number: PVI-US-2024-001040

PATIENT

DRUGS (1)
  1. SYFOVRE [Suspect]
     Active Substance: PEGCETACOPLAN
     Indication: Infection
     Dosage: 6-7 WEEKS
     Dates: start: 20230816, end: 20240603

REACTIONS (3)
  - Eye infection [Unknown]
  - Hordeolum [Unknown]
  - Off label use [Unknown]

NARRATIVE: CASE EVENT DATE: 20230816
